FAERS Safety Report 11151777 (Version 3)
Quarter: 2015Q3

REPORT INFORMATION
  Report Type: Spontaneous
  Country: JP (occurrence: JP)
  Receive Date: 20150601
  Receipt Date: 20150807
  Transmission Date: 20151125
  Serious: Yes (Death)
  Sender: FDA-Public Use
  Company Number: JP-SA-2015SA072740

PATIENT
  Age: 75 Year
  Sex: Male
  Weight: 46 kg

DRUGS (30)
  1. 5-FU [Suspect]
     Active Substance: FLUOROURACIL
     Route: 065
     Dates: start: 20150421, end: 20150425
  2. NORMAL SALINE [Concomitant]
     Active Substance: SODIUM CHLORIDE
     Dates: start: 20150425, end: 20150425
  3. MAGNESIUM SULFATE. [Concomitant]
     Active Substance: MAGNESIUM SULFATE
     Dosage: STRENGTH: 1MEQ/ML?DOSE: 1 AMPULE DAILY
     Dates: start: 20150419, end: 20150421
  4. NORMAL SALINE [Concomitant]
     Active Substance: SODIUM CHLORIDE
     Dates: start: 20150421, end: 20150421
  5. SODIUM CHLORIDE. [Concomitant]
     Active Substance: SODIUM CHLORIDE
     Dosage: STRENGTH: ISOTONIC SODIUM CHLORIDE SOLUTION ^TERUMO^ 500 ML?DOSE: 1 BAG/DAY
     Dates: start: 20150419, end: 20150421
  6. G-LASTA [Concomitant]
     Active Substance: PEGFILGRASTIM
     Dosage: STRENGTH: 3.6MG?DOSE: 1SYRINGE
     Route: 058
     Dates: start: 20150428, end: 20150428
  7. SODIUM PICOSULFATE [Concomitant]
     Active Substance: SODIUM PICOSULFATE
     Indication: CONSTIPATION
     Dosage: DOSE: 1 BOTTLE?STRENGTH: 0.75%
     Route: 048
     Dates: start: 20150426, end: 20150426
  8. HACHIAZULE [Concomitant]
     Dosage: STRENGTH: 2 G?DOSE: 3 PACKAGE/DAY,  A FEW TIMES/DAY
     Route: 061
     Dates: start: 20150421, end: 20150421
  9. MEYLON [Concomitant]
     Active Substance: SODIUM BICARBONATE
     Dosage: STRENGTH: MEYLON INJECTION 7% 250 ML ?DOSE: 1 BAG DAILY
     Route: 042
     Dates: start: 20150430, end: 20150430
  10. SODIUM CHLORIDE. [Concomitant]
     Active Substance: SODIUM CHLORIDE
     Dosage: STRENGTH: ISOTONIC SODIUM CHLORIDE SOLUTION ^TERUMO^ 250 ML
     Dates: start: 20150421, end: 20150421
  11. DECADRON (DEXAMETHASONE SODIUM PHOSPHATE) [Concomitant]
     Active Substance: DEXAMETHASONE SODIUM PHOSPHATE
     Dosage: STRENGTH: 1.65MG?DOSE: 2 AMPULE DAILY
     Dates: start: 20150421, end: 20150421
  12. EMEND [Concomitant]
     Active Substance: APREPITANT
     Dosage: DOSE: 1 SET FOR 3 DAYS
     Route: 048
     Dates: start: 20150420, end: 20150420
  13. SODIUM CHLORIDE. [Concomitant]
     Active Substance: SODIUM CHLORIDE
     Dosage: STRENGTH: ISOTONIC SODIUM CHLORIDE SOLUTION 1000 ML/BAG
     Route: 042
     Dates: start: 20150421, end: 20150425
  14. MANNITOL. [Concomitant]
     Active Substance: MANNITOL
     Dosage: STRENGTH: 20%
     Dates: start: 20150421, end: 20150421
  15. TAXOTERE [Suspect]
     Active Substance: DOCETAXEL
     Indication: OESOPHAGEAL CARCINOMA
     Dosage: FREQUENCY: 3 TO 4 WEEKS
     Route: 042
     Dates: start: 20150421, end: 20150421
  16. TAXOTERE [Suspect]
     Active Substance: DOCETAXEL
     Indication: OESOPHAGEAL CARCINOMA
     Dosage: FREQUENCY: 3 TO 4 WEEKS
     Route: 042
     Dates: start: 20150421, end: 20150421
  17. SODIUM CHLORIDE. [Concomitant]
     Active Substance: SODIUM CHLORIDE
     Dosage: STRENGTH:ISOTONIC SODIUM CHLORIDE SOLUTION KIT H 100ML?DOSE: 1 KIT DAILY
     Route: 042
     Dates: start: 20150430, end: 20150430
  18. KYTRIL [Concomitant]
     Active Substance: GRANISETRON HYDROCHLORIDE
     Dosage: STRENGTH:  INFUSION BAG 3 MG/100 ML?DOSE: 1 BAG DAILY
     Route: 042
     Dates: start: 20150421, end: 20150421
  19. CISPLATIN. [Suspect]
     Active Substance: CISPLATIN
     Dosage: IT WAS REOPRTED, THE PATIENT TOOK CISPLATIN AT A DOSE OF 80 MG (30 MG AND 50 MG QD).
     Route: 065
     Dates: start: 20150421, end: 20150421
  20. KENALOG [Concomitant]
     Active Substance: TRIAMCINOLONE ACETONIDE
     Dosage: DOSE: 1 TUBE IN MORNING?STRENGTH: KENALOG IN ORABASE 0.1% [5 G]
     Route: 061
     Dates: start: 20150421, end: 20150421
  21. DECADRON [Concomitant]
     Active Substance: DEXAMETHASONE
     Dosage: STRENGTH: 0.5G?FREQUENCY: IMMEDIATELY AFTER BREAKFAST AND LUNCH
     Route: 048
     Dates: start: 20150421, end: 20150423
  22. BIOFERMIN [Concomitant]
     Active Substance: BACILLUS SUBTILIS\LACTOBACILLUS ACIDOPHILUS\STREPTOCOCCUS FAECAIS
     Dosage: FREQUENCY: IMMEDIATELY AFTER EACH MEAL
     Route: 048
     Dates: start: 20150429, end: 20150501
  23. NORMAL SALINE [Concomitant]
     Active Substance: SODIUM CHLORIDE
     Dates: start: 20150421, end: 20150421
  24. SODIUM CHLORIDE. [Concomitant]
     Active Substance: SODIUM CHLORIDE
     Dosage: STRENGTH: ISOTONIC SODIUM CHLORIDE SOLUTION ^TERUMO^ 500 ML?DOSE: 1 BAG/DAY
     Dates: start: 20150419, end: 20150420
  25. DECADRON (DEXAMETHASONE SODIUM PHOSPHATE) [Concomitant]
     Active Substance: DEXAMETHASONE SODIUM PHOSPHATE
     Dosage: STRENGTH: 6.6MG/2ML?DOSE: 1 VIAL DAILY
     Dates: start: 20150421, end: 20150421
  26. HARTMANN^S SOLUTION [Concomitant]
     Active Substance: CALCIUM CHLORIDE\POTASSIUM CHLORIDE\SODIUM CHLORIDE\SODIUM LACTATE
     Dosage: STREBGTH: 500ML
     Dates: start: 20150421, end: 20150423
  27. RINDERON VG [Concomitant]
     Active Substance: BETAMETHASONE VALERATE\GENTAMICIN SULFATE
     Dosage: DOSE:2 TUBES/DAY?STRENGTH: 0.12% [5G]
     Route: 061
     Dates: start: 20150426, end: 20150426
  28. HACHIAZULE [Concomitant]
     Dosage: STRENGTH: 2 G?DOSE: 30PACKAGE/DAY
     Route: 061
     Dates: start: 20150421, end: 20150421
  29. LASIX [Concomitant]
     Active Substance: FUROSEMIDE
     Dosage: STRENGTH: 20MG?DOSE: 0.5 AMPULES DAILY
     Route: 042
     Dates: start: 20150423, end: 20150424
  30. SODIUM CHLORIDE. [Concomitant]
     Active Substance: SODIUM CHLORIDE
     Dosage: STRENGTH: ISOTONIC SODIUM CHLORIDE SOLUTION ^TERUMO^ 500 ML
     Dates: start: 20150421, end: 20150421

REACTIONS (3)
  - Diarrhoea [Fatal]
  - Abdominal pain [Fatal]
  - Necrotising colitis [Fatal]

NARRATIVE: CASE EVENT DATE: 20150430
